FAERS Safety Report 10794158 (Version 1)
Quarter: 2015Q1

REPORT INFORMATION
  Report Type: Report from Study
  Country: US (occurrence: US)
  Receive Date: 20150213
  Receipt Date: 20150213
  Transmission Date: 20150721
  Serious: Yes (Other)
  Sender: FDA-Public Use
  Company Number: US-GLAXOSMITHKLINE-US2015GSK019805

PATIENT

DRUGS (2)
  1. PREDNISONE. [Concomitant]
     Active Substance: PREDNISONE
     Indication: GRAFT VERSUS HOST DISEASE
     Dosage: 1 MG/KG, CYC
  2. OFATUMUMAB [Suspect]
     Active Substance: OFATUMUMAB
     Indication: GRAFT VERSUS HOST DISEASE
     Dosage: UNK, CYC
     Route: 042

REACTIONS (1)
  - Muscle spasms [Unknown]
